FAERS Safety Report 7234535-3 (Version None)
Quarter: 2011Q1

REPORT INFORMATION
  Report Type: 
  Country: None (occurrence: None)
  Receive Date: 20110119
  Receipt Date: 20110113
  Transmission Date: 20110831
  Serious: Yes (Hospitalization)
  Sender: FDA-Public Use
  Company Number: CA-AMGEN-CANSP2010006287

PATIENT

DRUGS (5)
  1. ENBREL [Suspect]
     Indication: RHEUMATOID ARTHRITIS
     Dosage: 50 MG, QWK
     Route: 058
     Dates: start: 20050101, end: 20100306
  2. LOSEC                              /00661201/ [Concomitant]
     Indication: GASTRITIS
     Dosage: 20 UNK, BID
     Route: 048
  3. CELEBREX [Concomitant]
     Indication: POLYARTHRITIS
     Dosage: 200 UNK, BID
     Route: 048
     Dates: start: 20050101
  4. ZOLOFT [Concomitant]
     Indication: BIPOLAR DISORDER
     Dosage: 100 UNK, UNK
  5. EPIVAL                             /00228502/ [Concomitant]
     Indication: BIPOLAR DISORDER
     Dosage: 750 UNK, BID
     Route: 048

REACTIONS (4)
  - ASTHENIA [None]
  - MULTIPLE SCLEROSIS [None]
  - URINARY INCONTINENCE [None]
  - BALANCE DISORDER [None]
